FAERS Safety Report 15240761 (Version 1)
Quarter: 2018Q3

REPORT INFORMATION
  Report Type: Spontaneous
  Country: US (occurrence: US)
  Receive Date: 20180804
  Receipt Date: 20180804
  Transmission Date: 20181010
  Serious: No
  Sender: FDA-Public Use
  Company Number: US-009507513-1807USA007861

PATIENT
  Age: 38 Year
  Sex: Female

DRUGS (3)
  1. GANCICLOVIR. [Concomitant]
     Active Substance: GANCICLOVIR
     Indication: PNEUMONIA ADENOVIRAL
     Dosage: UNK
  2. GLOBULIN, IMMUNE [Concomitant]
     Active Substance: HUMAN IMMUNOGLOBULIN G
     Route: 042
  3. REBETOL [Suspect]
     Active Substance: RIBAVIRIN
     Indication: PNEUMONIA ADENOVIRAL
     Dosage: UNK

REACTIONS (1)
  - Off label use [Unknown]
